FAERS Safety Report 12208456 (Version 5)
Quarter: 2016Q3

REPORT INFORMATION
  Report Type: Spontaneous
  Country: US (occurrence: US)
  Receive Date: 20160324
  Receipt Date: 20160715
  Transmission Date: 20161109
  Serious: Yes (Other)
  Sender: FDA-Public Use
  Company Number: PHEH2016US006802

PATIENT
  Age: 64 Year
  Sex: Female
  Weight: 110 kg

DRUGS (6)
  1. METOPROLOL. [Concomitant]
     Active Substance: METOPROLOL
     Indication: PRODUCT USED FOR UNKNOWN INDICATION
     Route: 065
  2. AMLODIPINE, HYDROCHLOROTHIAZIDE, VALSARTAN [Suspect]
     Active Substance: AMLODIPINE\HYDROCHLOROTHIAZIDE\VALSARTAN
     Dosage: 1 DF, (10 MG AMLO, 25 MG HYDRO AND 320 MG VALS)
     Route: 048
     Dates: start: 20160208, end: 20160208
  3. EXFORGE HCT [Concomitant]
     Active Substance: AMLODIPINE BESYLATE\HYDROCHLOROTHIAZIDE\VALSARTAN
     Indication: HYPERTENSION
     Dosage: 1 DF, (320 MG AMLO, 10 MG HYDRO, 25 MG VALS)
     Route: 048
     Dates: start: 20141229, end: 20160503
  4. VALSARTAN AND HYDROCHLOROTHIAZIDE [Concomitant]
     Active Substance: HYDROCHLOROTHIAZIDE\VALSARTAN
     Indication: PRODUCT USED FOR UNKNOWN INDICATION
     Dosage: 1 DF, QD
     Route: 048
     Dates: start: 20160504, end: 20160525
  5. AMLODIPINE, HYDROCHLOROTHIAZIDE, VALSARTAN [Suspect]
     Active Substance: AMLODIPINE\HYDROCHLOROTHIAZIDE\VALSARTAN
     Indication: HYPERTENSION
     Dosage: 1 DF, (10 MG AMLO, 25 MG HYDRO AND 320 MG VALS)
     Route: 048
     Dates: start: 20141229, end: 20141229
  6. WARFARIN [Concomitant]
     Active Substance: WARFARIN
     Indication: PRODUCT USED FOR UNKNOWN INDICATION
     Route: 065

REACTIONS (8)
  - Urticaria [Unknown]
  - Oedema [Unknown]
  - Flushing [Unknown]
  - Swelling [Unknown]
  - Rash generalised [Recovered/Resolved]
  - Erythema [Unknown]
  - Pruritus [Unknown]
  - Dyspnoea [Unknown]

NARRATIVE: CASE EVENT DATE: 20141229
